FAERS Safety Report 17608871 (Version 1)
Quarter: 2020Q2

REPORT INFORMATION
  Report Type: Spontaneous
  Country: US (occurrence: US)
  Receive Date: 20200401
  Receipt Date: 20200401
  Transmission Date: 20200713
  Serious: No
  Sender: FDA-Public Use
  Company Number: US-UCBSA-2017021935

PATIENT
  Age: 71 Year
  Sex: Female

DRUGS (13)
  1. METHYLPHENIDATE HYDROCHLORIDE. [Suspect]
     Active Substance: METHYLPHENIDATE HYDROCHLORIDE
     Indication: DISTURBANCE IN ATTENTION
     Dosage: UNKNOWN DOSE
  2. DESVENLAFAXINE. [Concomitant]
     Active Substance: DESVENLAFAXINE
     Indication: DEPRESSION
     Dosage: UNKNOWN DOSE
  3. SERTRALINE [Concomitant]
     Active Substance: SERTRALINE HYDROCHLORIDE
     Indication: DEPRESSION
     Dosage: UNKNOWN DOSE
  4. BUPROPION. [Concomitant]
     Active Substance: BUPROPION
     Indication: DEPRESSION
     Dosage: UNKNOWN DOSE
  5. MODAFINIL. [Concomitant]
     Active Substance: MODAFINIL
     Indication: DEPRESSION
     Dosage: UNKNOWN DOSE
  6. LEVOTHYROXINE. [Concomitant]
     Active Substance: LEVOTHYROXINE
     Indication: PRODUCT USED FOR UNKNOWN INDICATION
     Dosage: UNKNOWN DOSE
  7. ARMODAFINIL. [Concomitant]
     Active Substance: ARMODAFINIL
     Indication: DEPRESSION
     Dosage: UNKNOWN DOSE
  8. LISDEXAMFETAMINE [Concomitant]
     Active Substance: LISDEXAMFETAMINE
     Indication: DEPRESSION
     Dosage: UNKNOWN DOSE
  9. AMPHETAMINE [Concomitant]
     Active Substance: AMPHETAMINE
     Indication: DEPRESSION
     Dosage: UNKNOWN DOSE
  10. ARIPIPRAZOLE. [Concomitant]
     Active Substance: ARIPIPRAZOLE
     Indication: DEPRESSION
     Dosage: UNKNOWN DOSE
  11. MIRTAZAPINE. [Concomitant]
     Active Substance: MIRTAZAPINE
     Indication: DEPRESSION
     Dosage: UNKNOWN DOSE
  12. ASENAPINE. [Concomitant]
     Active Substance: ASENAPINE
     Indication: DEPRESSION
     Dosage: UNKNOWN DOSE
  13. LITHIUM. [Concomitant]
     Active Substance: LITHIUM
     Indication: DEPRESSION
     Dosage: UNKNOWN DOSE

REACTIONS (1)
  - Drug ineffective [Unknown]
